FAERS Safety Report 7655223-5 (Version None)
Quarter: 2011Q3

REPORT INFORMATION
  Report Type: 
  Country: None (occurrence: None)
  Receive Date: 20110801
  Receipt Date: 20110714
  Transmission Date: 20111222
  Serious: Yes (Hospitalization, Disabling)
  Sender: FDA-Public Use
  Company Number: 2011MA008862

PATIENT
  Age: 77 Year
  Sex: Female

DRUGS (1)
  1. AMANTADINE HYDROCHLORIDE [Suspect]
     Indication: TREMOR
     Dosage: 50MG TID UNK

REACTIONS (4)
  - CORNEAL OEDEMA [None]
  - BLINDNESS [None]
  - HALLUCINATIONS, MIXED [None]
  - HYPOAESTHESIA [None]
